FAERS Safety Report 7019668-9 (Version None)
Quarter: 2010Q3

REPORT INFORMATION
  Report Type: 
  Country: None (occurrence: None)
  Receive Date: 20100928
  Receipt Date: 20100928
  Transmission Date: 20110219
  Serious: Yes (Other)
  Sender: FDA-Public Use
  Company Number: None

PATIENT
  Sex: Male
  Weight: 94.8018 kg

DRUGS (14)
  1. CARVEDILOL [Suspect]
     Indication: HYPERTENSION
     Dosage: 12.5MG TWICE DAILY PO
     Route: 048
     Dates: start: 20100507, end: 20100810
  2. APAP TAB [Concomitant]
  3. ALBUTEROL [Concomitant]
  4. FLUTICASONE PROPIONATE [Concomitant]
  5. FOLIC ACID [Concomitant]
  6. FUROSEMIDE [Concomitant]
  7. GUAIFENESIN [Concomitant]
  8. IBUPROFEN [Concomitant]
  9. LISINOPRIL [Concomitant]
  10. SOLMETEROL [Concomitant]
  11. SIMVASTATIN [Concomitant]
  12. THEOPHYLLINE [Concomitant]
  13. TIOTROPIUM [Concomitant]
  14. VERAPAMIL [Concomitant]

REACTIONS (2)
  - ANGIOEDEMA [None]
  - OEDEMA PERIPHERAL [None]
